FAERS Safety Report 21606925 (Version 2)
Quarter: 2022Q4

REPORT INFORMATION
  Report Type: Spontaneous
  Country: US (occurrence: US)
  Receive Date: 20221117
  Receipt Date: 20221201
  Transmission Date: 20230113
  Serious: No
  Sender: FDA-Public Use
  Company Number: US-LUPIN PHARMACEUTICALS INC.-2022-13464

PATIENT

DRUGS (1)
  1. GAVILAX [Suspect]
     Active Substance: POLYETHYLENE GLYCOL 3350
     Indication: Constipation
     Dosage: UNK
     Route: 048
     Dates: start: 20221103

REACTIONS (3)
  - Headache [Recovered/Resolved]
  - Product after taste [Unknown]
  - Product quality issue [Unknown]

NARRATIVE: CASE EVENT DATE: 20221101
